FAERS Safety Report 5998014-3 (Version None)
Quarter: 2008Q4

REPORT INFORMATION
  Report Type: 
  Country: None (occurrence: None)
  Receive Date: 20081211
  Receipt Date: 20081125
  Transmission Date: 20090506
  Serious: Yes (Hospitalization)
  Sender: FDA-Public Use
  Company Number: KV200800623

PATIENT
  Age: 72 Year
  Sex: Female

DRUGS (13)
  1. ISOSORBIDE MONONITRATE        (ISOSORBIDE MONONITRATE)    SLOW RELEASE [Suspect]
     Indication: CARDIAC DISORDER
     Dosage: 60 MG, BID, ORAL
     Route: 048
     Dates: start: 19870101
  2. METFORMIN HCL [Concomitant]
  3. HUMULIN       /00646001/ (INSULIN HUMAN) [Concomitant]
  4. HUMALOG       1000305011 (INSULIN) [Concomitant]
  5. PLAVIX [Concomitant]
  6. LASIX [Concomitant]
  7. PENTOXIFYLLIN (PENTOXIFYLLINE) [Concomitant]
  8. DILTIAZEM [Concomitant]
  9. ALTACE [Concomitant]
  10. ZOCOR [Concomitant]
  11. COREG [Concomitant]
  12. NEURONTIN [Concomitant]
  13. NORVASC/00972401/ (AMLODIPINE) [Concomitant]

REACTIONS (3)
  - DIZZINESS [None]
  - LOSS OF CONSCIOUSNESS [None]
  - PRODUCT QUALITY ISSUE [None]
